FAERS Safety Report 6636218-7 (Version None)
Quarter: 2010Q1

REPORT INFORMATION
  Report Type: 
  Country: None (occurrence: None)
  Receive Date: 20100310
  Receipt Date: 20100112
  Transmission Date: 20100710
  Serious: Yes (Other)
  Sender: FDA-Public Use
  Company Number: 2010SP003090

PATIENT
  Age: 39 Year
  Sex: Female

DRUGS (3)
  1. MIRTAZAPINE [Suspect]
     Indication: DEPRESSION
     Dosage: 15 MG;QD;PO
     Route: 048
     Dates: start: 20091026, end: 20091225
  2. ZOLPIDEM TARTRATE [Suspect]
     Indication: SLEEP DISORDER
     Dosage: 5 MG;QD;PO
     Route: 048
     Dates: start: 20080421
  3. FLUNITRAZEPAM (CON.) [Concomitant]

REACTIONS (3)
  - DELIRIUM [None]
  - DEPRESSION [None]
  - POTENTIATING DRUG INTERACTION [None]
